FAERS Safety Report 15495242 (Version 1)
Quarter: 2018Q4

REPORT INFORMATION
  Report Type: Spontaneous
  Country: US (occurrence: US)
  Receive Date: 20181012
  Receipt Date: 20181012
  Transmission Date: 20190205
  Serious: Yes (Hospitalization, Other)
  Sender: FDA-Public Use
  Company Number: None

PATIENT
  Age: 49 Year
  Sex: Female
  Weight: 77.85 kg

DRUGS (2)
  1. DULOXETIN [Suspect]
     Active Substance: DULOXETINE
     Indication: NEURALGIA
     Dosage: ?          QUANTITY:1 CAPSULE(S);?
     Route: 048
     Dates: start: 20130927, end: 20180513
  2. DULOXETIN [Suspect]
     Active Substance: DULOXETINE
     Indication: DEPRESSION

REACTIONS (14)
  - Crying [None]
  - Suicidal ideation [None]
  - Suicide attempt [None]
  - Loss of employment [None]
  - Anxiety [None]
  - Drug ineffective [None]
  - Withdrawal syndrome [None]
  - Depersonalisation/derealisation disorder [None]
  - Loss of personal independence in daily activities [None]
  - Intentional overdose [None]
  - Drug withdrawal syndrome [None]
  - Product complaint [None]
  - Depression [None]
  - Bedridden [None]

NARRATIVE: CASE EVENT DATE: 20180916
